FAERS Safety Report 9722066 (Version 1)
Quarter: 2013Q4

REPORT INFORMATION
  Report Type: Spontaneous
  Country: US (occurrence: US)
  Receive Date: 20131202
  Receipt Date: 20131202
  Transmission Date: 20140711
  Serious: No
  Sender: FDA-Public Use
  Company Number: US-BIOGENIDEC-2013BI087410

PATIENT
  Age: 53 Year
  Sex: Female
  Weight: 57 kg

DRUGS (11)
  1. TECFIDERA [Suspect]
     Indication: MULTIPLE SCLEROSIS
     Route: 048
     Dates: start: 2013, end: 2013
  2. TECFIDERA [Suspect]
     Indication: MULTIPLE SCLEROSIS
     Route: 048
     Dates: start: 2013, end: 20130605
  3. METHENAMINE HIPPURATE [Concomitant]
     Indication: PROPHYLAXIS URINARY TRACT INFECTION
     Route: 048
     Dates: start: 20130420
  4. DIAZEPAM [Concomitant]
     Route: 048
     Dates: start: 20130325
  5. DETROL [Concomitant]
     Route: 048
     Dates: start: 20130603
  6. AMBIEN [Concomitant]
     Route: 048
     Dates: start: 20130312
  7. HYDROCODONE ACETAMINOPHEN [Concomitant]
     Indication: PAIN
     Route: 048
     Dates: start: 20130122
  8. IBUPROFEN [Concomitant]
     Route: 048
     Dates: start: 20120831
  9. IMODIUM A-D [Concomitant]
     Route: 048
  10. VITAMIN D [Concomitant]
     Route: 048
  11. GABAPENTIN [Concomitant]
     Indication: NEURALGIA

REACTIONS (8)
  - Liver function test abnormal [Recovered/Resolved]
  - Abdominal pain [Recovered/Resolved]
  - Abdominal rigidity [Recovered/Resolved]
  - Bandaemia [Recovered/Resolved]
  - Urinary tract infection [Unknown]
  - Fall [Recovered/Resolved]
  - Rash pustular [Unknown]
  - Foot fracture [Unknown]
